FAERS Safety Report 7880838 (Version 3)
Quarter: 2013Q4

REPORT INFORMATION
  Report Type: Spontaneous
  Country: US (occurrence: US)
  Receive Date: 20110401
  Receipt Date: 20131125
  Transmission Date: 20140711
  Serious: Yes (Hospitalization)
  Sender: FDA-Public Use
  Company Number: US-BIOGENIDEC-2011BI011198

PATIENT
  Age: 42 Year
  Sex: Female

DRUGS (3)
  1. AVONEX [Suspect]
     Indication: MULTIPLE SCLEROSIS
     Route: 030
     Dates: start: 20080924, end: 20090504
  2. AVONEX [Suspect]
     Indication: MULTIPLE SCLEROSIS
     Route: 030
     Dates: start: 20090727
  3. LEVAQUIN [Concomitant]

REACTIONS (8)
  - Urinary tract infection [Recovered/Resolved]
  - Multiple sclerosis relapse [Not Recovered/Not Resolved]
  - Pathogen resistance [Recovered/Resolved]
  - Back pain [Unknown]
  - Injection site haemorrhage [Unknown]
  - Memory impairment [Unknown]
  - Emotional distress [Recovered/Resolved]
  - Muscle spasms [Recovered/Resolved]
